FAERS Safety Report 5717938-5 (Version None)
Quarter: 2008Q2

REPORT INFORMATION
  Report Type: 
  Country: None (occurrence: None)
  Receive Date: 20080425
  Receipt Date: 20080417
  Transmission Date: 20081010
  Serious: Yes (Hospitalization, Other)
  Sender: FDA-Public Use
  Company Number: A0613482A

PATIENT
  Age: 15 Year
  Sex: Male
  Weight: 50 kg

DRUGS (3)
  1. LAMICTAL [Suspect]
     Indication: AFFECTIVE DISORDER
     Dosage: 50MG PER DAY
     Route: 048
     Dates: start: 20060101
  2. TRAZODONE HCL [Suspect]
     Indication: INSOMNIA
     Route: 048
  3. PSYCHOTROPIC DRUGS [Concomitant]

REACTIONS (5)
  - DERMATITIS BULLOUS [None]
  - RASH VESICULAR [None]
  - SKIN EXFOLIATION [None]
  - SKIN LESION [None]
  - STEVENS-JOHNSON SYNDROME [None]
